FAERS Safety Report 13766954 (Version 1)
Quarter: 2017Q3

REPORT INFORMATION
  Report Type: Spontaneous
  Country: US (occurrence: US)
  Receive Date: 20170719
  Receipt Date: 20170719
  Transmission Date: 20171127
  Serious: Yes (Hospitalization)
  Sender: FDA-Public Use
  Company Number: None

PATIENT
  Age: 75 Year
  Sex: Male
  Weight: 69.5 kg

DRUGS (2)
  1. 5-FLUOROURACIL (5-FU) [Suspect]
     Active Substance: FLUOROURACIL
     Dates: end: 20170630
  2. CISPLATIN. [Suspect]
     Active Substance: CISPLATIN
     Dates: end: 20170626

REACTIONS (7)
  - Oropharyngeal pain [None]
  - Anaemia [None]
  - Lymphocyte count decreased [None]
  - Stomatitis [None]
  - Asthenia [None]
  - Urinary tract infection [None]
  - Dysphagia [None]

NARRATIVE: CASE EVENT DATE: 20170709
